FAERS Safety Report 15114196 (Version 1)
Quarter: 2018Q3

REPORT INFORMATION
  Report Type: Report from Study
  Country: NL (occurrence: NL)
  Receive Date: 20180706
  Receipt Date: 20180706
  Transmission Date: 20181010
  Serious: Yes (Hospitalization)
  Sender: FDA-Public Use
  Company Number: NL-ROCHE-2149004

PATIENT

DRUGS (5)
  1. BEVACIZUMAB. [Suspect]
     Active Substance: BEVACIZUMAB
     Indication: METASTASES TO LIVER
     Dosage: DATE OF LAST DOSE WAS 02/JUL/2018? FOR 15?30 MIN
     Route: 042
     Dates: start: 20171213
  2. OXALIPLATIN. [Suspect]
     Active Substance: OXALIPLATIN
     Indication: METASTASES TO LIVER
     Route: 042
  3. FLUOROURACIL. [Suspect]
     Active Substance: FLUOROURACIL
     Dosage: IN 46 HRS EVERY 2 WEEKS
     Route: 041
  4. FLUOROURACIL. [Suspect]
     Active Substance: FLUOROURACIL
     Indication: METASTASES TO LIVER
     Dosage: WITHIN 4 MN FOR ALL ON DAY 1
     Route: 040
  5. LEUCOVORIN. [Suspect]
     Active Substance: LEUCOVORIN
     Indication: METASTASES TO LIVER
     Dosage: DATE OF MOST RECENT DOSE WAS 02/JUL/2018? IN 120 MIN
     Route: 042
     Dates: start: 20171213

REACTIONS (3)
  - Mucosal inflammation [Recovering/Resolving]
  - Hypotension [Recovered/Resolved]
  - Ileus [Recovering/Resolving]

NARRATIVE: CASE EVENT DATE: 20180115
